FAERS Safety Report 4476822-8 (Version None)
Quarter: 2004Q4

REPORT INFORMATION
  Report Type: 
  Country: None (occurrence: None)
  Receive Date: 20041012
  Receipt Date: 20041005
  Transmission Date: 20050328
  Serious: Yes (Hospitalization)
  Sender: FDA-Public Use
  Company Number: 2004UW20803

PATIENT
  Sex: Male

DRUGS (4)
  1. IRESSA [Suspect]
     Indication: PANCREATIC CARCINOMA METASTATIC
     Dosage: SPLITS IN THIRDS; ONE THIRD TID
  2. IRESSA [Suspect]
     Indication: PANCREATIC CARCINOMA METASTATIC
     Dosage: SPLITS IN THIRDS; ONE THIRD TID
  3. GEMZAR [Concomitant]
  4. XELODA [Concomitant]

REACTIONS (3)
  - ABDOMINAL COMPARTMENT SYNDROME [None]
  - BLOOD ALBUMIN DECREASED [None]
  - DIARRHOEA [None]
